FAERS Safety Report 6549291-1 (Version None)
Quarter: 2010Q1

REPORT INFORMATION
  Report Type: 
  Country: None (occurrence: None)
  Receive Date: 20100125
  Receipt Date: 20100118
  Transmission Date: 20100710
  Serious: Yes (Other)
  Sender: FDA-Public Use
  Company Number: HU-SANOFI-AVENTIS-2009SA010301

PATIENT
  Age: 64 Year
  Sex: Male

DRUGS (3)
  1. SOLOSTAR [Suspect]
     Indication: DIABETES MELLITUS
     Dosage: DOSE IS 14-12-12 UNITS
     Dates: start: 20080101
  2. INSULIN GLULISINE [Suspect]
     Indication: DIABETES MELLITUS
     Dates: start: 20080101
  3. LANTUS [Concomitant]
     Indication: DIABETES MELLITUS
     Route: 058

REACTIONS (1)
  - DEVICE MALFUNCTION [None]
